FAERS Safety Report 4816202-6 (Version None)
Quarter: 2005Q4

REPORT INFORMATION
  Report Type: 
  Country: None (occurrence: None)
  Receive Date: 20051028
  Receipt Date: 20051018
  Transmission Date: 20060501
  Serious: Yes (Death)
  Sender: FDA-Public Use
  Company Number: CERZ-11002

PATIENT
  Age: 33 Month
  Sex: Female
  Weight: 10 kg

DRUGS (1)
  1. CEREZYME [Suspect]
     Indication: GAUCHER'S DISEASE
     Dosage: 60 U/KG Q2WKS IV
     Route: 042
     Dates: start: 20040601, end: 20040901

REACTIONS (3)
  - DISEASE PROGRESSION [None]
  - GAUCHER'S DISEASE [None]
  - PYREXIA [None]
